FAERS Safety Report 18313631 (Version 1)
Quarter: 2020Q3

REPORT INFORMATION
  Report Type: Report from Study
  Country: US (occurrence: US)
  Receive Date: 20200925
  Receipt Date: 20200925
  Transmission Date: 20201103
  Serious: Yes (Hospitalization, Other)
  Sender: FDA-Public Use
  Company Number: US-JNJFOC-A-NJ2017-151647

PATIENT
  Age: 75 Year
  Sex: Male
  Weight: 76.27 kg

DRUGS (9)
  1. OPSUMIT [Suspect]
     Active Substance: MACITENTAN
     Dosage: 10 MG, QD
     Route: 048
  2. OPSUMIT [Suspect]
     Active Substance: MACITENTAN
     Route: 048
  3. UPTRAVI [Suspect]
     Active Substance: SELEXIPAG
     Dosage: 200 MCG, BID
     Route: 048
  4. ADEMPAS [Concomitant]
     Active Substance: RIOCIGUAT
  5. METFORMIN [Concomitant]
     Active Substance: METFORMIN HYDROCHLORIDE
  6. UPTRAVI [Suspect]
     Active Substance: SELEXIPAG
     Indication: PULMONARY ARTERIAL HYPERTENSION
     Dosage: 1000 MCG, BID
     Route: 048
  7. UPTRAVI [Suspect]
     Active Substance: SELEXIPAG
     Dosage: 1200 MCG, BID
     Route: 048
     Dates: start: 20170327
  8. UPTRAVI [Suspect]
     Active Substance: SELEXIPAG
     Dosage: 1400 MCG, BID
     Route: 048
     Dates: start: 20170324
  9. OPSUMIT [Suspect]
     Active Substance: MACITENTAN
     Indication: PULMONARY ARTERIAL HYPERTENSION
     Route: 048
     Dates: start: 20141028

REACTIONS (37)
  - Faeces soft [Unknown]
  - Pyrexia [Unknown]
  - Pain in extremity [Unknown]
  - Eczema [Unknown]
  - White blood cell count increased [Unknown]
  - Headache [Unknown]
  - Hypotension [Unknown]
  - Joint swelling [Unknown]
  - Glycosylated haemoglobin increased [Unknown]
  - Diarrhoea [Unknown]
  - Feeling cold [Unknown]
  - Heart rate increased [Unknown]
  - Product dose omission issue [Unknown]
  - Skin haemorrhage [Unknown]
  - Constipation [Unknown]
  - Frequent bowel movements [Unknown]
  - Dizziness [Unknown]
  - Dizziness postural [Unknown]
  - Diabetes mellitus [Unknown]
  - Diverticulitis [Unknown]
  - Tremor [Unknown]
  - Dry eye [Unknown]
  - Chills [Unknown]
  - Blood pressure decreased [Recovered/Resolved]
  - Muscular weakness [Unknown]
  - Skin ulcer [Unknown]
  - Dyspnoea exertional [Unknown]
  - Blister [Unknown]
  - Presyncope [Not Recovered/Not Resolved]
  - Large intestine infection [Unknown]
  - Functional gastrointestinal disorder [Unknown]
  - Neuropathy peripheral [Unknown]
  - Cataract [Unknown]
  - Gastrointestinal disorder [Unknown]
  - Palpitations [Unknown]
  - Peripheral swelling [Unknown]
  - Gait disturbance [Unknown]

NARRATIVE: CASE EVENT DATE: 20170326
